FAERS Safety Report 17367263 (Version 1)
Quarter: 2020Q1

REPORT INFORMATION
  Report Type: Spontaneous
  Country: ES (occurrence: ES)
  Receive Date: 20200204
  Receipt Date: 20200204
  Transmission Date: 20200409
  Serious: Yes (Death, Hospitalization)
  Sender: FDA-Public Use
  Company Number: ES-ELI_LILLY_AND_COMPANY-ES202001013860

PATIENT
  Age: 67 Year
  Sex: Female
  Weight: 55 kg

DRUGS (19)
  1. CARBOPLATIN. [Suspect]
     Active Substance: CARBOPLATIN
     Indication: BREAST CANCER
     Dosage: UNK UNK, UNKNOWN
     Route: 065
     Dates: start: 201112, end: 201202
  2. GEMCITABINE HYDROCHLORIDE. [Suspect]
     Active Substance: GEMCITABINE HYDROCHLORIDE
     Indication: BREAST CANCER
     Dosage: UNK, UNKNOWN
     Route: 065
     Dates: start: 201108, end: 201112
  3. HERCEPTIN [Suspect]
     Active Substance: TRASTUZUMAB
     Dosage: UNK, UNKNOWN
     Route: 065
     Dates: start: 200909, end: 201002
  4. HERCEPTIN [Suspect]
     Active Substance: TRASTUZUMAB
     Dosage: UNK, UNKNOWN
     Route: 065
     Dates: start: 201104, end: 201108
  5. LAPATINIB [Suspect]
     Active Substance: LAPATINIB
     Dosage: UNK, UNKNOWN
     Route: 065
     Dates: start: 201011, end: 201012
  6. ERIBULIN [Suspect]
     Active Substance: ERIBULIN
     Indication: BREAST CANCER
     Dosage: UNK UNK, UNKNOWN
     Route: 065
     Dates: start: 201203, end: 201206
  7. PACLITAXEL. [Suspect]
     Active Substance: PACLITAXEL
     Indication: BREAST CANCER
     Dosage: UNK UNK, UNKNOWN
     Route: 065
     Dates: start: 201104, end: 201108
  8. CAELYX [Suspect]
     Active Substance: DOXORUBICIN HYDROCHLORIDE
     Indication: BREAST CANCER
     Dosage: UNK UNK, UNKNOWN
     Route: 065
     Dates: start: 200907, end: 200909
  9. LAPATINIB [Suspect]
     Active Substance: LAPATINIB
     Dosage: UNK, UNKNOWN
     Route: 065
     Dates: start: 201012, end: 201104
  10. HERCEPTIN [Suspect]
     Active Substance: TRASTUZUMAB
     Dosage: UNK, UNKNOWN
     Route: 065
     Dates: start: 201108, end: 201112
  11. HERCEPTIN [Suspect]
     Active Substance: TRASTUZUMAB
     Dosage: UNK, UNKNOWN
     Route: 065
     Dates: start: 201012, end: 201104
  12. HERCEPTIN [Suspect]
     Active Substance: TRASTUZUMAB
     Dosage: UNK, UNKNOWN
     Route: 065
     Dates: start: 200907, end: 200909
  13. TAXOTERE [Suspect]
     Active Substance: DOCETAXEL
     Indication: BREAST CANCER
     Dosage: UNK, UNKNOWN
     Route: 065
     Dates: start: 200909, end: 201002
  14. HERCEPTIN [Suspect]
     Active Substance: TRASTUZUMAB
     Indication: BREAST CANCER
     Dosage: UNK, UNKNOWN
     Route: 065
     Dates: start: 20080410, end: 200907
  15. VINORELBINE [Suspect]
     Active Substance: VINORELBINE TARTRATE
     Indication: BREAST CANCER
     Dosage: UNK, UNKNOWN
     Route: 065
     Dates: start: 20081004, end: 200907
  16. CAPECITABINE. [Suspect]
     Active Substance: CAPECITABINE
     Indication: BREAST CANCER
     Dosage: UNK UNK, UNKNOWN
     Route: 048
     Dates: start: 201002, end: 201011
  17. HERCEPTIN [Suspect]
     Active Substance: TRASTUZUMAB
     Dosage: UNK UNK, UNKNOWN
     Route: 065
     Dates: start: 201012, end: 201104
  18. VINORELBINE [Suspect]
     Active Substance: VINORELBINE TARTRATE
     Dosage: UNK, UNKNOWN
     Route: 065
     Dates: start: 201011, end: 201012
  19. LAPATINIB [Suspect]
     Active Substance: LAPATINIB
     Indication: BREAST CANCER
     Dosage: UNK UNK, UNKNOWN
     Route: 065
     Dates: start: 201002, end: 201011

REACTIONS (4)
  - Pulmonary embolism [Unknown]
  - Death [Fatal]
  - Palmar-plantar erythrodysaesthesia syndrome [Unknown]
  - Mucosal inflammation [Unknown]

NARRATIVE: CASE EVENT DATE: 2009
